FAERS Safety Report 7488043-5 (Version None)
Quarter: 2011Q2

REPORT INFORMATION
  Report Type: 
  Country: None (occurrence: None)
  Receive Date: 20110518
  Receipt Date: 20110513
  Transmission Date: 20111010
  Serious: No
  Sender: FDA-Public Use
  Company Number: US-PFIZER INC-2011103692

PATIENT
  Sex: Female
  Weight: 54.422 kg

DRUGS (2)
  1. CLINDAMYCIN HCL [Suspect]
     Indication: TOOTH EXTRACTION
     Dosage: 150 MG, 4X/DAY
     Route: 048
     Dates: start: 20110401, end: 20110408
  2. CLINDAMYCIN HCL [Suspect]
     Indication: BONE GRAFT

REACTIONS (5)
  - FATIGUE [None]
  - DIZZINESS [None]
  - DIARRHOEA [None]
  - NAUSEA [None]
  - ASTHENIA [None]
